FAERS Safety Report 17616200 (Version 1)
Quarter: 2020Q2

REPORT INFORMATION
  Report Type: Spontaneous
  Country: CN (occurrence: CN)
  Receive Date: 20200402
  Receipt Date: 20200402
  Transmission Date: 20200713
  Serious: Yes (Other)
  Sender: FDA-Public Use
  Company Number: CN-ROCHE-2573159

PATIENT
  Age: 68 Year
  Sex: Male

DRUGS (16)
  1. OXALIPLATIN. [Concomitant]
     Active Substance: OXALIPLATIN
     Indication: METASTASES TO ADRENALS
     Dosage: XELOX REGIMEN 1 CYCLE
     Route: 065
     Dates: start: 201909
  2. AVASTIN [Suspect]
     Active Substance: BEVACIZUMAB
     Indication: METASTASES TO ADRENALS
  3. CETUXIMAB. [Suspect]
     Active Substance: CETUXIMAB
     Indication: HEPATIC CANCER
     Dosage: DAY1
     Route: 041
     Dates: start: 2019
  4. CETUXIMAB. [Suspect]
     Active Substance: CETUXIMAB
     Indication: METASTASES TO ADRENALS
     Dosage: DAY1
     Route: 041
     Dates: start: 2019
  5. AVASTIN [Suspect]
     Active Substance: BEVACIZUMAB
     Indication: RECTAL CANCER STAGE IV
     Dosage: DAY1 EVERY 21 DAYS AS ONE CYCE
     Route: 065
  6. AVASTIN [Suspect]
     Active Substance: BEVACIZUMAB
     Indication: HEPATIC CANCER
  7. CETUXIMAB. [Suspect]
     Active Substance: CETUXIMAB
     Indication: RECTAL CANCER STAGE IV
     Dosage: DAY 1
     Route: 041
     Dates: start: 20190522, end: 20190815
  8. CAPECITABINE. [Suspect]
     Active Substance: CAPECITABINE
     Indication: HEPATIC CANCER
     Dosage: 2.0 (UNIT NOT SPECIFIED) AT MORNING, 1.5 AT EVENING?XELOX + BEVACIZUMAB REGIMEN
     Route: 048
  9. CAPECITABINE. [Suspect]
     Active Substance: CAPECITABINE
     Indication: METASTASES TO ADRENALS
     Dosage: XELOX REGIMEN 1 CYCLE
     Route: 048
     Dates: start: 201909
  10. OXALIPLATIN. [Concomitant]
     Active Substance: OXALIPLATIN
     Indication: RECTAL CANCER STAGE IV
     Dosage: XELOX REGIMEN 4 CYCLES, DAY1
     Route: 041
     Dates: start: 20190522, end: 20190815
  11. OXALIPLATIN. [Concomitant]
     Active Substance: OXALIPLATIN
     Indication: HEPATIC CANCER
     Route: 065
     Dates: start: 2019
  12. RALTITREXED [Concomitant]
     Active Substance: RALTITREXED
     Indication: RECTAL CANCER STAGE IV
     Route: 065
     Dates: start: 2019
  13. CAPECITABINE. [Suspect]
     Active Substance: CAPECITABINE
     Indication: RECTAL CANCER STAGE IV
     Dosage: XELOX REGIMEN 4 CYCLES, 2.0 AT MORNING, 1.5 AT NIGHT
     Route: 048
     Dates: start: 20190522, end: 20190815
  14. CETUXIMAB. [Suspect]
     Active Substance: CETUXIMAB
     Dosage: 1 CYCLE
     Route: 041
     Dates: start: 201909
  15. RALTITREXED [Concomitant]
     Active Substance: RALTITREXED
     Indication: HEPATIC CANCER
     Route: 065
     Dates: start: 2019
  16. RALTITREXED [Concomitant]
     Active Substance: RALTITREXED
     Indication: METASTASES TO ADRENALS

REACTIONS (2)
  - Bone marrow failure [Unknown]
  - Rash [Recovering/Resolving]

NARRATIVE: CASE EVENT DATE: 2019
